FAERS Safety Report 7076421-8 (Version None)
Quarter: 2010Q4

REPORT INFORMATION
  Report Type: 
  Country: None (occurrence: None)
  Receive Date: 20101021
  Receipt Date: 20101005
  Transmission Date: 20110411
  Serious: Yes (Other)
  Sender: FDA-Public Use
  Company Number: 2010SP049816

PATIENT
  Age: 57 Year
  Sex: Female

DRUGS (2)
  1. INTRON A [Suspect]
     Indication: HEPATITIS C
     Dosage: 1.5 MCG/KG;QW
  2. COPEGUS [Suspect]
     Indication: HEPATITIS C

REACTIONS (6)
  - IRON DEFICIENCY ANAEMIA [None]
  - OPTIC ATROPHY [None]
  - OPTIC NEUROPATHY [None]
  - PAPILLOEDEMA [None]
  - PRIMARY HYPOTHYROIDISM [None]
  - RETINAL HAEMORRHAGE [None]
